FAERS Safety Report 5913475-3 (Version None)
Quarter: 2008Q4

REPORT INFORMATION
  Report Type: 
  Country: None (occurrence: None)
  Receive Date: 20081008
  Receipt Date: 20081008
  Transmission Date: 20090506
  Serious: Yes (Death, Life-Threatening, Hospitalization, Other)
  Sender: FDA-Public Use
  Company Number: None

PATIENT
  Age: 60 Year
  Sex: Female
  Weight: 105 kg

DRUGS (12)
  1. AZATHIOPRINE [Suspect]
     Indication: IDIOPATHIC PULMONARY FIBROSIS
     Dosage: 150MG DAILY PO
     Route: 048
     Dates: start: 20020101, end: 20080101
  2. PREDNISONE [Concomitant]
  3. CYCLOBENAZAPRINE [Concomitant]
  4. FERROUS GLUCONATE [Concomitant]
  5. METOPROLOL TARTRATE [Concomitant]
  6. TRAZODONE HCL [Concomitant]
  7. ESOMEPRAZOLE MAGNESIUM [Concomitant]
  8. WARFARIN SODIUM [Concomitant]
  9. ASPIRIN [Concomitant]
  10. CITALOPRAM HYDROBROMIDE [Concomitant]
  11. FUROSEMIDE [Concomitant]
  12. POTASSIUM CHLORIDE [Concomitant]

REACTIONS (10)
  - ARRHYTHMIA [None]
  - BONE MARROW FAILURE [None]
  - CREPITATIONS [None]
  - FIBROSIS [None]
  - GASTROINTESTINAL HAEMORRHAGE [None]
  - HEART RATE IRREGULAR [None]
  - HYPOXIA [None]
  - MELAENA [None]
  - PANCYTOPENIA [None]
  - PETECHIAE [None]
